FAERS Safety Report 16511298 (Version 1)
Quarter: 2019Q3

REPORT INFORMATION
  Report Type: Spontaneous
  Country: TH (occurrence: TH)
  Receive Date: 20190702
  Receipt Date: 20190702
  Transmission Date: 20191004
  Serious: Yes (Death)
  Sender: FDA-Public Use
  Company Number: PHHY2019TH150447

PATIENT
  Age: 67 Year
  Sex: Female

DRUGS (1)
  1. EVEROLIMUS. [Suspect]
     Active Substance: EVEROLIMUS
     Indication: NEUROENDOCRINE TUMOUR
     Dosage: UNK
     Route: 065
     Dates: start: 201709

REACTIONS (3)
  - Hyperglycaemia [Unknown]
  - Pneumonia aspiration [Fatal]
  - Intestinal obstruction [Fatal]

NARRATIVE: CASE EVENT DATE: 201711
